FAERS Safety Report 10461594 (Version 2)
Quarter: 2014Q4

REPORT INFORMATION
  Report Type: Spontaneous
  Country: FR (occurrence: FR)
  Receive Date: 20140918
  Receipt Date: 20141230
  Transmission Date: 20150528
  Serious: Yes (Hospitalization)
  Sender: FDA-Public Use
  Company Number: FR-SA-2014SA126127

PATIENT
  Age: 72 Year
  Sex: Male

DRUGS (9)
  1. ZOLPIDEM TARTRATE. [Suspect]
     Active Substance: ZOLPIDEM TARTRATE
     Route: 048
     Dates: start: 20140810, end: 20140810
  2. EXFORGE [Concomitant]
     Active Substance: AMLODIPINE BESYLATE\VALSARTAN
     Route: 048
  3. NICORANDIL [Concomitant]
     Active Substance: NICORANDIL
  4. GABAPENTIN. [Suspect]
     Active Substance: GABAPENTIN
     Indication: NEURALGIA
     Route: 048
     Dates: start: 20140712, end: 20140822
  5. XALATAN [Concomitant]
     Active Substance: LATANOPROST
  6. KARDEGIC [Concomitant]
     Active Substance: ASPIRIN LYSINE
     Route: 048
  7. GABAPENTIN. [Suspect]
     Active Substance: GABAPENTIN
     Indication: NEURALGIA
     Route: 048
     Dates: start: 20140823, end: 20140823
  8. PRADAXA [Concomitant]
     Active Substance: DABIGATRAN ETEXILATE MESYLATE
  9. AMIODARONE [Concomitant]
     Active Substance: AMIODARONE

REACTIONS (6)
  - Amnesia [Recovered/Resolved]
  - Bradycardia [Recovered/Resolved]
  - Ataxia [Recovered/Resolved]
  - Accidental exposure to product [Unknown]
  - Psychomotor skills impaired [Recovered/Resolved]
  - Diplopia [Recovered/Resolved]

NARRATIVE: CASE EVENT DATE: 20140810
